FAERS Safety Report 5648303-7 (Version None)
Quarter: 2008Q1

REPORT INFORMATION
  Report Type: 
  Country: None (occurrence: None)
  Receive Date: 20080304
  Receipt Date: 20080222
  Transmission Date: 20080703
  Serious: Yes (Hospitalization)
  Sender: FDA-Public Use
  Company Number: US-JNJFOC-20080206037

PATIENT
  Age: 73 Year
  Sex: Female

DRUGS (6)
  1. REMICADE [Suspect]
     Indication: CROHN'S DISEASE
     Route: 042
  2. REMICADE [Suspect]
     Indication: COLITIS ULCERATIVE
     Route: 042
  3. PREDNISONE TAB [Concomitant]
     Indication: COLITIS ULCERATIVE
  4. PREDNISONE TAB [Concomitant]
     Indication: CROHN'S DISEASE
     Dosage: 4 - 6/DAY
  5. ASACOL [Concomitant]
     Indication: COLITIS ULCERATIVE
  6. ASACOL [Concomitant]
     Indication: CROHN'S DISEASE
     Dosage: 4 - 6/DAY

REACTIONS (1)
  - GASTROINTESTINAL DISORDER [None]
